FAERS Safety Report 22339995 (Version 1)
Quarter: 2023Q2

REPORT INFORMATION
  Report Type: Spontaneous
  Country: FR (occurrence: FR)
  Receive Date: 20230518
  Receipt Date: 20230518
  Transmission Date: 20230721
  Serious: Yes (Other)
  Sender: FDA-Public Use
  Company Number: FR-MYLANLABS-2023M1051270

PATIENT
  Age: 61 Year
  Sex: Female

DRUGS (3)
  1. AZACITIDINE [Suspect]
     Active Substance: AZACITIDINE
     Indication: Acute myeloid leukaemia
     Dosage: 75 MILLIGRAM/SQ. METER, CYCLICAL TREATMENT, 4 WEEKS
     Route: 058
  2. DURVALUMAB [Concomitant]
     Active Substance: DURVALUMAB
     Indication: Acute myeloid leukaemia
     Dosage: 1500 MILLIGRAM,CYCLICAL TREATMENT, 4 WEEKS
     Route: 042
  3. Immunoglobulin [Concomitant]
     Indication: Guillain-Barre syndrome
     Dosage: UNK
     Route: 042

REACTIONS (1)
  - Drug ineffective [Unknown]
